FAERS Safety Report 9412802 (Version 1)
Quarter: 2013Q3

REPORT INFORMATION
  Report Type: Report from Study
  Country: DE (occurrence: DE)
  Receive Date: 20130722
  Receipt Date: 20130722
  Transmission Date: 20140515
  Serious: Yes (Hospitalization, Other)
  Sender: FDA-Public Use
  Company Number: DE-ROCHE-1251074

PATIENT
  Sex: Male

DRUGS (4)
  1. RITUXIMAB [Suspect]
     Indication: RHEUMATOID ARTHRITIS
     Route: 065
     Dates: start: 20100414, end: 201106
  2. METHOTREXAT [Suspect]
     Indication: RHEUMATOID ARTHRITIS
     Route: 058
     Dates: start: 200810
  3. METHOTREXAT [Suspect]
     Dosage: WEEKLY
     Route: 058
     Dates: start: 200901
  4. PREDNISOLON [Concomitant]
     Indication: RHEUMATOID ARTHRITIS
     Route: 065
     Dates: start: 200805

REACTIONS (3)
  - Atrial flutter [Recovered/Resolved]
  - Congestive cardiomyopathy [Unknown]
  - Pertussis [Unknown]
